FAERS Safety Report 4864533-6 (Version None)
Quarter: 2005Q4

REPORT INFORMATION
  Report Type: 
  Country: None (occurrence: None)
  Receive Date: 20051222
  Receipt Date: 20050909
  Transmission Date: 20060501
  Serious: Yes (Hospitalization)
  Sender: FDA-Public Use
  Company Number: FR-ROCHE-416996

PATIENT
  Age: 41 Year
  Sex: Female
  Weight: 51 kg

DRUGS (15)
  1. DACLIZUMAB [Suspect]
     Dosage: ONE OFF DOSE OF 2MG/KG ON DAY 0.
     Route: 042
     Dates: start: 20050614, end: 20050614
  2. DACLIZUMAB [Suspect]
     Dosage: ONE OFF DOSE OF 1MG/KG ON DAY 14.  FORM REPORTED AS INFUSION.
     Route: 042
     Dates: start: 20050628, end: 20050628
  3. MYCOPHENOLATE MOFETIL [Suspect]
     Route: 048
     Dates: start: 20050614, end: 20050901
  4. MYCOPHENOLATE MOFETIL [Suspect]
     Dosage: DOSE AMOUNT REDUCED.
     Route: 048
     Dates: start: 20050901, end: 20050902
  5. MYCOPHENOLATE MOFETIL [Suspect]
     Dosage: THERAPY RESTARTED.
     Route: 048
     Dates: start: 20050929
  6. CYCLOSPORINE [Suspect]
     Route: 048
     Dates: start: 20050616, end: 20050907
  7. CYCLOSPORINE [Suspect]
     Dosage: DOSE AMOUNT REDUCED.
     Route: 048
     Dates: start: 20050907
  8. SOLU-MEDROL [Suspect]
     Route: 048
     Dates: start: 20050614
  9. MOPRAL [Concomitant]
     Indication: DRUG USE FOR UNKNOWN INDICATION
     Route: 048
     Dates: start: 20050614
  10. BACTRIM DS [Concomitant]
     Route: 048
     Dates: start: 20050616
  11. AMLOR [Concomitant]
     Indication: DRUG USE FOR UNKNOWN INDICATION
     Route: 048
     Dates: start: 20050616
  12. EUPRESSYL [Concomitant]
     Indication: DRUG USE FOR UNKNOWN INDICATION
     Route: 048
     Dates: start: 20050619
  13. ROCEPHIN [Concomitant]
     Dates: start: 20050825, end: 20050902
  14. HYPERIUM [Concomitant]
     Dates: start: 20050815, end: 20050923
  15. ZELITREX [Concomitant]

REACTIONS (4)
  - AGRANULOCYTOSIS [None]
  - HYPERTENSION [None]
  - RENAL FAILURE ACUTE [None]
  - URINARY TRACT INFECTION [None]
